FAERS Safety Report 9392309 (Version 1)
Quarter: 2013Q3

REPORT INFORMATION
  Report Type: Spontaneous
  Country: NZ (occurrence: NZ)
  Receive Date: 20130710
  Receipt Date: 20130710
  Transmission Date: 20140515
  Serious: Yes (Hospitalization, Other)
  Sender: FDA-Public Use
  Company Number: NZ-ROCHE-1160875

PATIENT
  Age: 58 Year
  Sex: Female

DRUGS (11)
  1. MABTHERA [Suspect]
     Indication: RHEUMATOID ARTHRITIS
     Route: 042
     Dates: start: 201205
  2. MABTHERA [Suspect]
     Route: 042
     Dates: start: 20121130
  3. MABTHERA [Suspect]
     Route: 042
     Dates: start: 20121217
  4. METHOTREXATE [Concomitant]
     Indication: RHEUMATOID ARTHRITIS
     Route: 058
     Dates: start: 2000
  5. PREDNISONE [Concomitant]
     Indication: RHEUMATOID ARTHRITIS
     Route: 048
     Dates: start: 2000
  6. BRUFEN [Concomitant]
     Indication: RHEUMATOID ARTHRITIS
     Route: 048
     Dates: start: 2000
  7. HYDROXYCHLOROQUINE [Concomitant]
     Indication: RHEUMATOID ARTHRITIS
     Route: 048
     Dates: start: 201303, end: 201304
  8. CILAZAPRIL [Concomitant]
     Indication: HYPERTENSION
     Route: 048
     Dates: start: 2000
  9. OMEPRAZOL [Concomitant]
     Route: 065
  10. SOLIFENACIN [Concomitant]
     Route: 065
  11. AMITRIPTYLINE [Concomitant]

REACTIONS (6)
  - Neutropenia [Recovered/Resolved]
  - Pleuritic pain [Unknown]
  - Pyrexia [Unknown]
  - Cough [Unknown]
  - Drug ineffective [Unknown]
  - Oral herpes [Unknown]
